FAERS Safety Report 10067921 (Version 2)
Quarter: 2014Q2

REPORT INFORMATION
  Report Type: Spontaneous
  Country: FR (occurrence: FR)
  Receive Date: 20140409
  Receipt Date: 20140409
  Transmission Date: 20141212
  Serious: No
  Sender: FDA-Public Use
  Company Number: FR-009507513-1401FRA009754

PATIENT
  Sex: Male
  Weight: 10 kg

DRUGS (1)
  1. DIPROSONE [Suspect]
     Route: 048

REACTIONS (2)
  - Incorrect route of drug administration [Unknown]
  - No adverse event [Unknown]
